FAERS Safety Report 11149688 (Version 1)
Quarter: 2015Q2

REPORT INFORMATION
  Report Type: Spontaneous
  Country: US (occurrence: US)
  Receive Date: 20150529
  Receipt Date: 20150529
  Transmission Date: 20150821
  Serious: No
  Sender: FDA-Public Use
  Company Number: US-SA-2015SA069477

PATIENT
  Age: 50 Year
  Sex: Female
  Weight: 72.57 kg

DRUGS (4)
  1. CALCIUM CITRATE [Concomitant]
     Active Substance: CALCIUM CITRATE
     Dosage: 1 DOSE AS DIRECTED
  2. ORSYTHIA [Concomitant]
     Active Substance: ETHINYL ESTRADIOL\LEVONORGESTREL
     Dosage: 1 DOSE AS DIRECTED
  3. CERDELGA [Suspect]
     Active Substance: ELIGLUSTAT
     Indication: LIPIDOSIS
     Route: 065
     Dates: start: 2015
  4. FINACEA [Concomitant]
     Active Substance: AZELAIC ACID
     Dosage: 1 DOSE TWICE A DAY

REACTIONS (2)
  - Sneezing [Not Recovered/Not Resolved]
  - Cough [Not Recovered/Not Resolved]
